FAERS Safety Report 21021506 (Version 9)
Quarter: 2023Q1

REPORT INFORMATION
  Report Type: Spontaneous
  Country: US (occurrence: US)
  Receive Date: 20220629
  Receipt Date: 20230102
  Transmission Date: 20230418
  Serious: No
  Sender: FDA-Public Use
  Company Number: US-GLAXOSMITHKLINE-US2022097722

PATIENT
  Age: 72 Year
  Sex: Female

DRUGS (4)
  1. ZEJULA [Suspect]
     Active Substance: NIRAPARIB
     Indication: Ovarian cancer
     Dosage: 200 MG, QD
     Dates: start: 20220609
  2. ZEJULA [Suspect]
     Active Substance: NIRAPARIB
     Dosage: 200 MG, QD
     Route: 048
     Dates: end: 20220819
  3. ZEJULA [Suspect]
     Active Substance: NIRAPARIB
     Dosage: 100 MG, QD
     Route: 048
     Dates: start: 20220915
  4. ZEJULA [Suspect]
     Active Substance: NIRAPARIB
     Dosage: 100 MG, QD

REACTIONS (15)
  - Decreased appetite [Unknown]
  - Nausea [Unknown]
  - Blood pressure increased [Not Recovered/Not Resolved]
  - Abdominal discomfort [Not Recovered/Not Resolved]
  - Heart rate increased [Unknown]
  - Haemoglobin decreased [Not Recovered/Not Resolved]
  - Dehydration [Unknown]
  - Tachycardia [Unknown]
  - Urine odour abnormal [Unknown]
  - Constipation [Unknown]
  - Nasopharyngitis [Unknown]
  - Bronchitis [Unknown]
  - Abdominal pain upper [Unknown]
  - Cough [Unknown]
  - Wrong dose [Unknown]

NARRATIVE: CASE EVENT DATE: 20220601
